FAERS Safety Report 20554199 (Version 1)
Quarter: 2022Q1

REPORT INFORMATION
  Report Type: Report from Study
  Country: AR (occurrence: AR)
  Receive Date: 20220304
  Receipt Date: 20220304
  Transmission Date: 20220423
  Serious: Yes (Hospitalization)
  Sender: FDA-Public Use
  Company Number: AR-NOVARTISPH-NVSC2022AR051702

PATIENT
  Age: 55 Year
  Sex: Male

DRUGS (1)
  1. COSENTYX [Suspect]
     Active Substance: SECUKINUMAB
     Indication: Psoriasis
     Dosage: 300 MG, QMO
     Route: 058
     Dates: start: 20210818

REACTIONS (5)
  - COVID-19 [Unknown]
  - Decreased immune responsiveness [Unknown]
  - Movement disorder [Unknown]
  - Pyrexia [Unknown]
  - Tachycardia [Unknown]

NARRATIVE: CASE EVENT DATE: 20220101
